FAERS Safety Report 9649070 (Version 2)
Quarter: 2014Q1

REPORT INFORMATION
  Report Type: Spontaneous
  Country: US (occurrence: None)
  Receive Date: 20131018
  Receipt Date: 20140122
  Transmission Date: 20141002
  Serious: No
  Sender: FDA-Public Use
  Company Number: AEGR000124

PATIENT
  Age: 63 Year
  Sex: Male
  Weight: 82.3 kg

DRUGS (6)
  1. JUXTAPID [Suspect]
     Indication: TYPE IIA HYPERLIPIDAEMIA
     Route: 048
     Dates: start: 20130628
  2. CRESTOR (ROSUVASTATIN CALCIUM) [Concomitant]
  3. LOSARTAN (LOSARTAN POTASSIUM) [Concomitant]
  4. TOPROL (METOPROLOL SUCCINATE) [Concomitant]
  5. PLAVIX (CLOPIDOGREL BISULFATE) [Concomitant]
  6. ASA (ASA) [Concomitant]

REACTIONS (1)
  - Weight decreased [None]
